FAERS Safety Report 7266821-5 (Version None)
Quarter: 2011Q1

REPORT INFORMATION
  Report Type: 
  Country: None (occurrence: None)
  Receive Date: 20110121
  Receipt Date: 20110113
  Transmission Date: 20110831
  Serious: Yes (Hospitalization, Other)
  Sender: FDA-Public Use
  Company Number: 2009SP023299

PATIENT
  Age: 25 Year
  Sex: Female

DRUGS (1)
  1. NUVARING [Suspect]
     Indication: CONTRACEPTION
     Dosage: 1 DF QM;
     Dates: start: 20070130, end: 20071001

REACTIONS (6)
  - MENTAL DISORDER [None]
  - DEEP VEIN THROMBOSIS [None]
  - IMPAIRED WORK ABILITY [None]
  - GAIT DISTURBANCE [None]
  - PULMONARY EMBOLISM [None]
  - VAGINITIS BACTERIAL [None]
